FAERS Safety Report 9456346 (Version 1)
Quarter: 2013Q3

REPORT INFORMATION
  Report Type: Spontaneous
  Country: US (occurrence: None)
  Receive Date: 20130812
  Receipt Date: 20130812
  Transmission Date: 20140515
  Serious: No
  Sender: FDA-Public Use
  Company Number: None

PATIENT
  Age: 37 Year
  Sex: Female
  Weight: 81.65 kg

DRUGS (1)
  1. ADDERALL [Suspect]
     Indication: ATTENTION DEFICIT/HYPERACTIVITY DISORDER
     Dosage: 2 PILLS ONCE DAILY TAKEN BY MOUTH
     Route: 048
     Dates: start: 20130805, end: 20130809

REACTIONS (8)
  - Disorientation [None]
  - Abdominal pain upper [None]
  - Disturbance in attention [None]
  - Fatigue [None]
  - Headache [None]
  - Nausea [None]
  - Diarrhoea [None]
  - Product substitution issue [None]
